FAERS Safety Report 5634175-3 (Version None)
Quarter: 2008Q1

REPORT INFORMATION
  Report Type: 
  Country: None (occurrence: None)
  Receive Date: 20080219
  Receipt Date: 20080205
  Transmission Date: 20080703
  Serious: No
  Sender: FDA-Public Use
  Company Number: 8029816

PATIENT
  Sex: Male

DRUGS (2)
  1. METHYLPHENIDATE HCL [Suspect]
     Dosage: 20 MG Q/D
     Dates: start: 20070125
  2. MEDIKINET [Concomitant]

REACTIONS (4)
  - ANXIETY [None]
  - GASTROINTESTINAL PAIN [None]
  - MALAISE [None]
  - TIC [None]
